FAERS Safety Report 12804938 (Version 1)
Quarter: 2016Q4

REPORT INFORMATION
  Report Type: Spontaneous
  Country: US (occurrence: US)
  Receive Date: 20161004
  Receipt Date: 20161004
  Transmission Date: 20170207
  Serious: Yes (Other)
  Sender: FDA-Public Use
  Company Number: US-AMGEN-USASP2016132269

PATIENT
  Age: 60 Year
  Sex: Female

DRUGS (2)
  1. PROLIA [Suspect]
     Active Substance: DENOSUMAB
     Indication: PRODUCT USED FOR UNKNOWN INDICATION
     Dosage: UNK
     Route: 065
     Dates: start: 2015
  2. TUMS [Concomitant]
     Active Substance: CALCIUM CARBONATE
     Dosage: UNK

REACTIONS (10)
  - Back pain [Unknown]
  - Nephrolithiasis [Unknown]
  - Abdominal pain [Recovering/Resolving]
  - Panic reaction [Unknown]
  - Nausea [Recovering/Resolving]
  - Weight decreased [Unknown]
  - Fatigue [Unknown]
  - Choking [Unknown]
  - Throat tightness [Recovering/Resolving]
  - Activities of daily living impaired [Unknown]

NARRATIVE: CASE EVENT DATE: 201607
